FAERS Safety Report 23651449 (Version 1)
Quarter: 2024Q1

REPORT INFORMATION
  Report Type: Spontaneous
  Country: US (occurrence: US)
  Receive Date: 20240320
  Receipt Date: 20240320
  Transmission Date: 20240410
  Serious: No
  Sender: FDA-Public Use
  Company Number: US-NEBO-PC013742

PATIENT
  Age: 64 Year
  Sex: Male

DRUGS (4)
  1. MONOFERRIC [Suspect]
     Active Substance: FERRIC DERISOMALTOSE
     Indication: Iron deficiency anaemia
     Route: 050
     Dates: start: 20240227, end: 20240227
  2. PEPCID [Concomitant]
     Active Substance: FAMOTIDINE
     Indication: Premedication
     Route: 050
  3. UNSPECIFIED INGREDIENT [Concomitant]
     Active Substance: UNSPECIFIED INGREDIENT
     Indication: Premedication
  4. APAP [Concomitant]
     Active Substance: ACETAMINOPHEN
     Indication: Premedication

REACTIONS (3)
  - Back pain [Recovered/Resolved]
  - Malaise [Recovered/Resolved]
  - Similar reaction on previous exposure to drug [Recovered/Resolved]

NARRATIVE: CASE EVENT DATE: 20240227
